FAERS Safety Report 6636952-9 (Version None)
Quarter: 2010Q1

REPORT INFORMATION
  Report Type: 
  Country: None (occurrence: None)
  Receive Date: 20100316
  Receipt Date: 20100304
  Transmission Date: 20100710
  Serious: No
  Sender: FDA-Public Use
  Company Number: US-B.I. PHARMACEUTICALS,INC./RIDGEFIELD-2009-BP-02690BP

PATIENT
  Sex: Male

DRUGS (3)
  1. FLOMAX [Suspect]
     Indication: BENIGN PROSTATIC HYPERPLASIA
     Dosage: 0.4 MG
     Route: 048
     Dates: start: 20090219
  2. LORAZEPAM [Concomitant]
     Indication: NERVOUSNESS
  3. OTHER MEDICATIONS [Concomitant]

REACTIONS (2)
  - NOCTURIA [None]
  - URINE FLOW DECREASED [None]
